FAERS Safety Report 6266995-9 (Version None)
Quarter: 2009Q3

REPORT INFORMATION
  Report Type: 
  Country: None (occurrence: None)
  Receive Date: 20090714
  Receipt Date: 20090706
  Transmission Date: 20100115
  Serious: Yes (Hospitalization, Other)
  Sender: FDA-Public Use
  Company Number: PHHY2009GB28115

PATIENT
  Sex: Male

DRUGS (3)
  1. CYCLOSPORINE [Suspect]
     Indication: COLITIS ULCERATIVE
  2. REMICADE [Suspect]
     Indication: COLITIS ULCERATIVE
     Dosage: 5 MG/KG, UNK
     Route: 042
  3. STEROIDS NOS [Concomitant]
     Indication: COLITIS ULCERATIVE

REACTIONS (2)
  - COLECTOMY [None]
  - COLITIS ULCERATIVE [None]
